FAERS Safety Report 9215565 (Version 2)
Quarter: 2013Q2

REPORT INFORMATION
  Report Type: Spontaneous
  Country: BR (occurrence: BR)
  Receive Date: 20130407
  Receipt Date: 20130418
  Transmission Date: 20140414
  Serious: Yes (Other)
  Sender: FDA-Public Use
  Company Number: BR-BRISTOL-MYERS SQUIBB COMPANY-18728535

PATIENT
  Age: 72 Year
  Sex: Male

DRUGS (4)
  1. ONGLYZA TABS 5 MG [Suspect]
     Indication: DIABETES MELLITUS
     Route: 048
  2. KOMBIGLYZE XR [Suspect]
     Indication: DIABETES MELLITUS
  3. DILTIAZEM HCL [Concomitant]
  4. VASTAREL [Concomitant]

REACTIONS (2)
  - Respiratory failure [Not Recovered/Not Resolved]
  - Diabetes mellitus inadequate control [Unknown]
